FAERS Safety Report 9638802 (Version 3)
Quarter: 2014Q2

REPORT INFORMATION
  Report Type: Spontaneous
  Country: US (occurrence: US)
  Receive Date: 20131022
  Receipt Date: 20140424
  Transmission Date: 20141212
  Serious: No
  Sender: FDA-Public Use
  Company Number: US-BRISTOL-MYERS SQUIBB COMPANY-19430164

PATIENT
  Age: 77 Year
  Sex: Male
  Weight: 67.57 kg

DRUGS (1)
  1. ELIQUIS [Suspect]
     Indication: PALPITATIONS

REACTIONS (6)
  - Swollen tongue [Unknown]
  - International normalised ratio fluctuation [Unknown]
  - Heart rate abnormal [Unknown]
  - Pharyngeal oedema [Unknown]
  - Drug dose omission [Unknown]
  - Diarrhoea [Recovering/Resolving]
